FAERS Safety Report 10960720 (Version 1)
Quarter: 2015Q1

REPORT INFORMATION
  Report Type: Spontaneous
  Country: JP (occurrence: None)
  Receive Date: 20150325
  Receipt Date: 20150325
  Transmission Date: 20150721
  Serious: Yes (Hospitalization)
  Sender: FDA-Public Use
  Company Number: JP-20150043

PATIENT
  Age: 78 Year
  Sex: Female

DRUGS (3)
  1. LIPIODOL ULTRA FLUID [Suspect]
     Active Substance: ETHIODIZED OIL
     Indication: THERAPEUTIC EMBOLISATION
     Dosage: UNK (1 ML), INTRA-ARTERIAL
     Route: 013
  2. MITOMYCIN C (MITOMYCIN) [Concomitant]
  3. DOXORUBICIN [Concomitant]
     Active Substance: DOXORUBICIN

REACTIONS (7)
  - Hepatic failure [None]
  - Skin necrosis [None]
  - Fluid retention [None]
  - Skin ulcer [None]
  - Pneumonia [None]
  - Product use issue [None]
  - Erythema [None]
